FAERS Safety Report 19184951 (Version 1)
Quarter: 2021Q2

REPORT INFORMATION
  Report Type: Spontaneous
  Country: US (occurrence: US)
  Receive Date: 20210426
  Receipt Date: 20210426
  Transmission Date: 20210717
  Serious: Yes (Hospitalization)
  Sender: FDA-Public Use
  Company Number: None

PATIENT
  Sex: Male

DRUGS (8)
  1. METOPROLO SUC ER [Concomitant]
  2. ELIQUIS [Concomitant]
     Active Substance: APIXABAN
  3. DOFETILIDE 250MCG CAP [Suspect]
     Active Substance: DOFETILIDE
     Route: 048
     Dates: start: 20180118, end: 20210424
  4. ATORVASTATIN [Concomitant]
     Active Substance: ATORVASTATIN
  5. MUPIROCIN. [Concomitant]
     Active Substance: MUPIROCIN
  6. LATANOPROST. [Concomitant]
     Active Substance: LATANOPROST
  7. LOSARTAN POT [Concomitant]
     Active Substance: LOSARTAN POTASSIUM
  8. TIMOLOL MAL [Concomitant]

REACTIONS (1)
  - Atrial fibrillation [None]
